FAERS Safety Report 25487897 (Version 1)
Quarter: 2025Q2

REPORT INFORMATION
  Report Type: Spontaneous
  Country: SG (occurrence: SG)
  Receive Date: 20250627
  Receipt Date: 20250627
  Transmission Date: 20250717
  Serious: Yes (Other)
  Sender: ROCHE
  Company Number: SG-ROCHE-10000279522

PATIENT
  Age: 64 Year
  Sex: Female

DRUGS (1)
  1. PHESGO [Suspect]
     Active Substance: HYALURONIDASE-ZZXF\PERTUZUMAB\TRASTUZUMAB
     Indication: Product used for unknown indication
     Route: 058

REACTIONS (2)
  - Disease progression [Unknown]
  - Drug ineffective [Unknown]
